FAERS Safety Report 15809130 (Version 2)
Quarter: 2021Q4

REPORT INFORMATION
  Report Type: Spontaneous
  Country: CO (occurrence: CO)
  Receive Date: 20190110
  Receipt Date: 20211018
  Transmission Date: 20220303
  Serious: Yes (Hospitalization, Other)
  Sender: FDA-Public Use
  Company Number: CO-BIOMARINAP-CO-2018-120181

PATIENT
  Age: 8 Year
  Sex: Male
  Weight: 17 kg

DRUGS (3)
  1. VIMIZIM [Suspect]
     Active Substance: ELOSULFASE ALFA
     Indication: Mucopolysaccharidosis IV
     Dosage: 35 MILLIGRAM, QW
     Route: 042
  2. VIMIZIM [Suspect]
     Active Substance: ELOSULFASE ALFA
     Dosage: 30 MILLIGRAM, QW
     Route: 042
     Dates: start: 201606
  3. VIMIZIM [Suspect]
     Active Substance: ELOSULFASE ALFA
     Dosage: 25 MILLIGRAM, QW
     Route: 042
     Dates: start: 201209

REACTIONS (4)
  - Knee deformity [Unknown]
  - Seroma [Unknown]
  - Internal fixation of fracture [Unknown]
  - Medical device site infection [Unknown]

NARRATIVE: CASE EVENT DATE: 20181002
